FAERS Safety Report 9823270 (Version 1)
Quarter: 2014Q1

REPORT INFORMATION
  Report Type: Report from Study
  Country: US (occurrence: US)
  Receive Date: 20140116
  Receipt Date: 20140116
  Transmission Date: 20141002
  Serious: Yes (Hospitalization)
  Sender: FDA-Public Use
  Company Number: US-ABBVIE-14P-163-1188366-00

PATIENT
  Age: 54 Year
  Sex: Female
  Weight: 97.16 kg

DRUGS (11)
  1. HUMIRA [Suspect]
     Indication: CROHN^S DISEASE
     Dates: start: 20131111
  2. IMURAN [Concomitant]
     Indication: CROHN^S DISEASE
  3. HYDROCHLOROTHIAZIDE [Concomitant]
     Indication: BLOOD PRESSURE
  4. ATENOLOL [Concomitant]
     Indication: PRODUCT USED FOR UNKNOWN INDICATION
  5. OMEPRAZOLE [Concomitant]
     Indication: DYSPEPSIA
  6. CALCIUM [Concomitant]
     Indication: PRODUCT USED FOR UNKNOWN INDICATION
  7. MULTIVITAMIN FOR SENIORS [Concomitant]
     Indication: PRODUCT USED FOR UNKNOWN INDICATION
  8. CHOLESTEROL MEDICINE [Concomitant]
     Indication: DIARRHOEA
     Dosage: EVERY AM WITH ORANGE JUICE
  9. PREDNISONE [Concomitant]
     Indication: CROHN^S DISEASE
     Dosage: TAPER
  10. VITAMIN B12 [Concomitant]
     Indication: PRODUCT USED FOR UNKNOWN INDICATION
  11. VOLTAREN [Concomitant]
     Indication: PRODUCT USED FOR UNKNOWN INDICATION

REACTIONS (10)
  - Subcutaneous abscess [Recovering/Resolving]
  - Furuncle [Recovered/Resolved]
  - Ingrown hair [Recovered/Resolved]
  - Furuncle [Recovered/Resolved]
  - Staphylococcal infection [Unknown]
  - Alopecia [Not Recovered/Not Resolved]
  - Fall [Unknown]
  - Joint injury [Not Recovered/Not Resolved]
  - Pain [Unknown]
  - Arthralgia [Not Recovered/Not Resolved]
